FAERS Safety Report 4898978-5 (Version None)
Quarter: 2006Q1

REPORT INFORMATION
  Report Type: 
  Country: None (occurrence: None)
  Receive Date: 20060127
  Receipt Date: 20060109
  Transmission Date: 20060701
  Serious: Yes (Death)
  Sender: FDA-Public Use
  Company Number: US200601001017

PATIENT
  Age: 10 Year
  Sex: Male

DRUGS (1)
  1. STRATTERA [Suspect]
     Dosage: 25 MG, EACH MORNING
     Dates: start: 20030417

REACTIONS (2)
  - COMPLETED SUICIDE [None]
  - INJURY ASPHYXIATION [None]
